FAERS Safety Report 15753966 (Version 1)
Quarter: 2018Q4

REPORT INFORMATION
  Report Type: Spontaneous
  Country: FR (occurrence: FR)
  Receive Date: 20181222
  Receipt Date: 20181222
  Transmission Date: 20190205
  Serious: Yes (Hospitalization)
  Sender: FDA-Public Use
  Company Number: FR-MYLANLABS-2018M1095453

PATIENT
  Age: 65 Year
  Sex: Male

DRUGS (1)
  1. ALLOPURINOL MYLAN 200 MG, COMPRIM? [Suspect]
     Active Substance: ALLOPURINOL
     Indication: PRODUCT USED FOR UNKNOWN INDICATION
     Dosage: UNK

REACTIONS (5)
  - Eosinophilia [Unknown]
  - Hyperleukocytosis [Unknown]
  - Arthralgia [Recovered/Resolved]
  - C-reactive protein increased [Unknown]
  - Myalgia [Unknown]
